FAERS Safety Report 9856764 (Version 2)
Quarter: 2014Q1

REPORT INFORMATION
  Report Type: Spontaneous
  Country: US (occurrence: US)
  Receive Date: 20140130
  Receipt Date: 20140214
  Transmission Date: 20141002
  Serious: Yes (Other)
  Sender: FDA-Public Use
  Company Number: US-BAYER-2014-013325

PATIENT
  Age: 35 Year
  Sex: Female

DRUGS (1)
  1. MIRENA [Suspect]
     Indication: CONTRACEPTION
     Dosage: 20 MCG/24HR, CONT
     Route: 015
     Dates: start: 20111129, end: 20131226

REACTIONS (9)
  - Nausea [None]
  - Insomnia [None]
  - Headache [None]
  - Dizziness [None]
  - Vision blurred [None]
  - Hot flush [None]
  - Device breakage [None]
  - Device dislocation [Recovered/Resolved]
  - Device breakage [None]
